FAERS Safety Report 19588912 (Version 1)
Quarter: 2021Q3

REPORT INFORMATION
  Report Type: Spontaneous
  Country: CA (occurrence: CA)
  Receive Date: 20210721
  Receipt Date: 20210721
  Transmission Date: 20211014
  Serious: Yes (Life-Threatening, Hospitalization, Other)
  Sender: FDA-Public Use
  Company Number: CA-HLS-202108034

PATIENT
  Sex: Male
  Weight: 90 kg

DRUGS (2)
  1. HALODOL [Concomitant]
     Active Substance: HALOPERIDOL
     Indication: PRODUCT USED FOR UNKNOWN INDICATION
     Route: 030
  2. CLOZAPINE. [Suspect]
     Active Substance: CLOZAPINE
     Indication: SCHIZOPHRENIA
     Route: 065

REACTIONS (6)
  - Renal impairment [Unknown]
  - Vomiting [Unknown]
  - Nausea [Unknown]
  - Hepatitis [Unknown]
  - Systemic inflammatory response syndrome [Unknown]
  - Myocarditis [Unknown]
